FAERS Safety Report 14655586 (Version 1)
Quarter: 2018Q1

REPORT INFORMATION
  Report Type: Spontaneous
  Country: GB (occurrence: GB)
  Receive Date: 20180319
  Receipt Date: 20180319
  Transmission Date: 20180509
  Serious: Yes (Life-Threatening, Congenital Anomaly, Other)
  Sender: FDA-Public Use
  Company Number: GB-TEVA-2018-GB-870565

PATIENT
  Age: 23 Year
  Sex: Female

DRUGS (1)
  1. VALPROATE SODIUM. [Suspect]
     Active Substance: VALPROATE SODIUM
     Route: 064

REACTIONS (7)
  - Dysmorphism [Unknown]
  - Adverse event [Unknown]
  - Unevaluable event [Unknown]
  - Autism spectrum disorder [Unknown]
  - Learning disability [Unknown]
  - Pain [Unknown]
  - Congenital anomaly [Unknown]
